FAERS Safety Report 13663828 (Version 1)
Quarter: 2017Q2

REPORT INFORMATION
  Report Type: Spontaneous
  Country: US (occurrence: US)
  Receive Date: 20170618
  Receipt Date: 20170618
  Transmission Date: 20170830
  Serious: Yes (Life-Threatening, Other)
  Sender: FDA-Public Use
  Company Number: None

PATIENT
  Age: 33 Year
  Sex: Male
  Weight: 106.6 kg

DRUGS (1)
  1. DEXTROAMPHET SACCHARAT, AMPHET ASPARTATE, DEXTROAMPHET SULFATE AND AMPHET SULFAT [Suspect]
     Active Substance: AMPHETAMINE ASPARTATE\AMPHETAMINE SULFATE\DEXTROAMPHETAMINE SACCHARATE\DEXTROAMPHETAMINE SULFATE
     Indication: ATTENTION DEFICIT/HYPERACTIVITY DISORDER
     Route: 048
     Dates: start: 20170613, end: 20170618

REACTIONS (14)
  - Ocular hyperaemia [None]
  - Lacrimation increased [None]
  - Joint swelling [None]
  - Urine leukocyte esterase positive [None]
  - Hyperhidrosis [None]
  - Hypoaesthesia [None]
  - Feeling hot [None]
  - Mental status changes [None]
  - Peripheral swelling [None]
  - Product substitution issue [None]
  - Flushing [None]
  - Skin toxicity [None]
  - Hyperthermia [None]
  - Skin odour abnormal [None]

NARRATIVE: CASE EVENT DATE: 20170616
